FAERS Safety Report 8380583-X (Version None)
Quarter: 2012Q2

REPORT INFORMATION
  Report Type: 
  Country: None (occurrence: None)
  Receive Date: 20120523
  Receipt Date: 20120517
  Transmission Date: 20120825
  Serious: Yes (Other)
  Sender: FDA-Public Use
  Company Number: US-ROCHE-1071182

PATIENT
  Age: 48 Year
  Sex: Female
  Weight: 59.02 kg

DRUGS (5)
  1. ATIVAN [Concomitant]
     Indication: ANXIETY
  2. CYMBALTA [Concomitant]
     Indication: ANXIETY
     Route: 048
     Dates: start: 20090101
  3. ATIVAN [Concomitant]
     Indication: NAUSEA
     Route: 048
     Dates: start: 20090101
  4. XELODA [Suspect]
     Indication: COLORECTAL CANCER METASTATIC
     Route: 048
     Dates: start: 20120426
  5. CYMBALTA [Concomitant]
     Indication: DEPRESSION

REACTIONS (1)
  - BLINDNESS UNILATERAL [None]
